FAERS Safety Report 7991975-2 (Version None)
Quarter: 2011Q4

REPORT INFORMATION
  Report Type: 
  Country: None (occurrence: None)
  Receive Date: 20111219
  Receipt Date: 20110712
  Transmission Date: 20120403
  Serious: No
  Sender: FDA-Public Use
  Company Number: US-ASTRAZENECA-2011SE38540

PATIENT
  Age: 75 Year
  Sex: Female

DRUGS (3)
  1. CRESTOR [Suspect]
     Route: 048
  2. SYMBICORT [Concomitant]
  3. CRESTOR [Suspect]
     Route: 048

REACTIONS (3)
  - ASTHMA [None]
  - INCORRECT DOSE ADMINISTERED [None]
  - CHRONIC OBSTRUCTIVE PULMONARY DISEASE [None]
